FAERS Safety Report 5570223-7 (Version None)
Quarter: 2007Q4

REPORT INFORMATION
  Report Type: 
  Country: None (occurrence: None)
  Receive Date: 20071220
  Receipt Date: 20071210
  Transmission Date: 20080405
  Serious: Yes (Other)
  Sender: FDA-Public Use
  Company Number: US-PFIZER INC-2007103909

PATIENT
  Sex: Male
  Weight: 65.8 kg

DRUGS (5)
  1. NORVASC [Suspect]
     Indication: HYPERTENSION
  2. AMLODIPINE [Suspect]
     Indication: HYPERTENSION
  3. METOPROLOL SUCCINATE [Concomitant]
  4. SIMVASTATIN [Concomitant]
  5. PREVACID [Concomitant]
     Indication: GASTROOESOPHAGEAL REFLUX DISEASE

REACTIONS (4)
  - BLOOD PRESSURE INCREASED [None]
  - DIZZINESS [None]
  - OESOPHAGITIS [None]
  - WEIGHT DECREASED [None]
